FAERS Safety Report 21807751 (Version 1)
Quarter: 2023Q1

REPORT INFORMATION
  Report Type: Other
  Country: US (occurrence: None)
  Receive Date: 20230103
  Receipt Date: 20230103
  Transmission Date: 20230418
  Serious: Yes (Other)
  Sender: FDA-Public Use
  Company Number: US-ROCHE-3254442

PATIENT
  Age: 29 Year
  Sex: Male
  Weight: 68.100 kg

DRUGS (5)
  1. OCREVUS [Suspect]
     Active Substance: OCRELIZUMAB
     Indication: Multiple sclerosis
     Dosage: YES, THEN INFUSE 600MG INTRAVENOUSLY EVERY 6 MONTH(S)
     Route: 042
     Dates: start: 2020
  2. TRAZODONE [Concomitant]
     Active Substance: TRAZODONE HYDROCHLORIDE
     Route: 048
  3. DULOXETINE [Concomitant]
     Active Substance: DULOXETINE
     Indication: Neuralgia
     Route: 048
  4. DULOXETINE [Concomitant]
     Active Substance: DULOXETINE
     Indication: Anxiety
  5. DULOXETINE [Concomitant]
     Active Substance: DULOXETINE
     Indication: Depression

REACTIONS (1)
  - Multiple sclerosis [Not Recovered/Not Resolved]
